FAERS Safety Report 5519744-3 (Version None)
Quarter: 2007Q4

REPORT INFORMATION
  Report Type: 
  Country: None (occurrence: None)
  Receive Date: 20071116
  Receipt Date: 20070801
  Transmission Date: 20080405
  Serious: No
  Sender: FDA-Public Use
  Company Number: A0667668A

PATIENT
  Age: 60 Year
  Sex: Male

DRUGS (8)
  1. COREG CR [Suspect]
     Indication: DRUG USE FOR UNKNOWN INDICATION
     Dosage: 80MG PER DAY
     Route: 048
     Dates: start: 20070706
  2. EPLERENONE [Concomitant]
  3. LANOXIN [Concomitant]
  4. COUMADIN [Concomitant]
  5. XANAX [Concomitant]
  6. METANX [Concomitant]
  7. ATACAND [Concomitant]
  8. HYDROCHLOROTHIAZIDE [Concomitant]

REACTIONS (3)
  - BLOOD PRESSURE DECREASED [None]
  - FATIGUE [None]
  - MALAISE [None]
